FAERS Safety Report 5289153-3 (Version None)
Quarter: 2007Q1

REPORT INFORMATION
  Report Type: 
  Country: None (occurrence: None)
  Receive Date: 20070124
  Receipt Date: 20060724
  Transmission Date: 20070707
  Serious: No
  Sender: FDA-Public Use
  Company Number: E2020-00279-SPO-US

PATIENT
  Age: 70 Year
  Sex: Male

DRUGS (3)
  1. ARICEPT [Suspect]
     Indication: DRUG USE FOR UNKNOWN INDICATION
  2. MEMANTINE HCL [Suspect]
     Indication: DRUG USE FOR UNKNOWN INDICATION
  3. MULTIPLE CONCOMITANT MEDICATIONS [Concomitant]

REACTIONS (1)
  - CONVULSION [None]
